FAERS Safety Report 21326407 (Version 7)
Quarter: 2023Q2

REPORT INFORMATION
  Report Type: Spontaneous
  Country: DE (occurrence: DE)
  Receive Date: 20220913
  Receipt Date: 20230530
  Transmission Date: 20230722
  Serious: Yes (Life-Threatening, Disabling, Other)
  Sender: FDA-Public Use
  Company Number: None

PATIENT
  Age: 29 Year
  Sex: Female
  Weight: 110 kg

DRUGS (11)
  1. MIRENA [Interacting]
     Active Substance: LEVONORGESTREL
     Indication: Heavy menstrual bleeding
     Dosage: UNK
     Route: 015
     Dates: start: 20170816
  2. MIRENA [Interacting]
     Active Substance: LEVONORGESTREL
     Indication: Iron deficiency
     Dosage: UNK
     Route: 015
     Dates: start: 2007
  3. MIRENA [Interacting]
     Active Substance: LEVONORGESTREL
     Indication: Heavy menstrual bleeding
     Dosage: UNK
     Dates: start: 2012
  4. TRESIBA [Interacting]
     Active Substance: INSULIN DEGLUDEC
     Indication: Type 1 diabetes mellitus
     Dosage: 38 IU
     Dates: start: 202010
  5. TRESIBA [Interacting]
     Active Substance: INSULIN DEGLUDEC
     Indication: Insulin resistance
  6. LEVEMIR [Interacting]
     Active Substance: INSULIN DETEMIR
     Indication: Type 1 diabetes mellitus
     Dosage: UNK
     Dates: start: 2010
  7. ACTRAPID [Interacting]
     Active Substance: INSULIN HUMAN
     Indication: Type 1 diabetes mellitus
     Dosage: UNK
     Dates: start: 199704
  8. FIASP [Interacting]
     Active Substance: INSULIN ASPART
     Indication: Insulin resistance
  9. FIASP [Interacting]
     Active Substance: INSULIN ASPART
     Indication: Type 1 diabetes mellitus
     Dosage: 1 BREAD UNIT  3-4 IU
     Dates: start: 202010
  10. PROTAPHANE [Interacting]
     Active Substance: INSULIN HUMAN
     Indication: Type 1 diabetes mellitus
     Dosage: UNK
     Dates: start: 199704
  11. HUMALOG [Interacting]
     Active Substance: INSULIN LISPRO
     Indication: Type 1 diabetes mellitus
     Dosage: UNK
     Dates: start: 2010

REACTIONS (14)
  - Occupational exposure to air contaminants [Not Recovered/Not Resolved]
  - Weight increased [Not Recovered/Not Resolved]
  - Hepatic steatosis [Not Recovered/Not Resolved]
  - Ectopic pregnancy [Unknown]
  - Mental disorder [Unknown]
  - Headache [Unknown]
  - Lactose intolerance [Unknown]
  - Urine odour abnormal [Unknown]
  - Hormone level abnormal [Unknown]
  - Haemangioma of skin [Unknown]
  - Hyperhidrosis [Unknown]
  - Skin odour abnormal [Unknown]
  - Drug interaction [Unknown]
  - Maternal exposure during pregnancy [Unknown]

NARRATIVE: CASE EVENT DATE: 20070101
